FAERS Safety Report 17130038 (Version 2)
Quarter: 2025Q3

REPORT INFORMATION
  Report Type: Report from Study
  Country: US (occurrence: US)
  Receive Date: 20191209
  Receipt Date: 20250801
  Transmission Date: 20251021
  Serious: No
  Sender: SANOFI AVENTIS
  Company Number: US-SA-2019SA339299

PATIENT
  Age: 34 Year
  Sex: Female

DRUGS (14)
  1. DUPIXENT [Suspect]
     Active Substance: DUPILUMAB
     Indication: Dermatitis atopic
     Dosage: 300 MG, QOW
     Route: 058
     Dates: start: 20191113
  2. DUPILUMAB [Suspect]
     Active Substance: DUPILUMAB
     Indication: Dermatitis atopic
     Dosage: 300 MG, QOW
     Route: 058
     Dates: start: 20250124
  3. ALBUTEROL [Concomitant]
     Active Substance: ALBUTEROL
  4. AZELASTINE [Concomitant]
     Active Substance: AZELASTINE
  5. MOMETASONE [Concomitant]
     Active Substance: MOMETASONE
  6. NALTREXONE [Concomitant]
     Active Substance: NALTREXONE
  7. QVAR REDIHALER [Concomitant]
     Active Substance: BECLOMETHASONE DIPROPIONATE
  8. TOBRAMYCIN [Concomitant]
     Active Substance: TOBRAMYCIN
  9. VITAMIN D3 [Concomitant]
     Active Substance: CHOLECALCIFEROL
  10. LEXAPRO [Concomitant]
     Active Substance: ESCITALOPRAM OXALATE
  11. WEGOVY [Concomitant]
     Active Substance: SEMAGLUTIDE
  12. SPIRONOLACTONE [Concomitant]
     Active Substance: SPIRONOLACTONE
  13. OMEPRAZOLE [Concomitant]
     Active Substance: OMEPRAZOLE
  14. VALTREX [Concomitant]
     Active Substance: VALACYCLOVIR HYDROCHLORIDE

REACTIONS (1)
  - Injection site pain [Not Recovered/Not Resolved]

NARRATIVE: CASE EVENT DATE: 20191114
